FAERS Safety Report 14240511 (Version 1)
Quarter: 2017Q4

REPORT INFORMATION
  Report Type: Spontaneous
  Country: SG (occurrence: SG)
  Receive Date: 20171130
  Receipt Date: 20171130
  Transmission Date: 20180321
  Serious: Yes (Death, Hospitalization, Other)
  Sender: FDA-Public Use
  Company Number: SG-009507513-1711SGP011372

PATIENT
  Age: 73 Year
  Sex: Male
  Weight: 47 kg

DRUGS (1)
  1. KEYTRUDA [Suspect]
     Active Substance: PEMBROLIZUMAB
     Indication: METASTATIC GASTRIC CANCER
     Dosage: UNK UNK, Q3W
     Route: 042
     Dates: start: 20171020, end: 20171110

REACTIONS (2)
  - Product use in unapproved indication [Unknown]
  - Renal failure [Fatal]

NARRATIVE: CASE EVENT DATE: 20171110
